FAERS Safety Report 7655204-1 (Version None)
Quarter: 2011Q3

REPORT INFORMATION
  Report Type: 
  Country: None (occurrence: None)
  Receive Date: 20110804
  Receipt Date: 20110725
  Transmission Date: 20111222
  Serious: Yes (Other)
  Sender: FDA-Public Use
  Company Number: DE-SHIRE-SPV1-2011-01085

PATIENT
  Sex: Female

DRUGS (1)
  1. METHYLPHENIDATE HCL [Suspect]
     Indication: DISTURBANCE IN ATTENTION
     Dosage: 10 MG, 2X/DAY:BID
     Route: 048

REACTIONS (1)
  - COLLAGEN DISORDER [None]
